FAERS Safety Report 4668099-5 (Version None)
Quarter: 2005Q2

REPORT INFORMATION
  Report Type: 
  Country: None (occurrence: None)
  Receive Date: 20050521
  Receipt Date: 20050301
  Transmission Date: 20051028
  Serious: Yes (Other)
  Sender: FDA-Public Use
  Company Number: PHNU2005DE01141

PATIENT
  Sex: Male

DRUGS (1)
  1. AREDIA [Suspect]
     Indication: HYPERCALCAEMIA OF MALIGNANCY
     Dosage: 60 MG, QMO
     Dates: start: 20020401

REACTIONS (5)
  - ABSCESS [None]
  - DENTAL TREATMENT [None]
  - OSTEOMYELITIS [None]
  - OSTEONECROSIS [None]
  - SEQUESTRECTOMY [None]
